FAERS Safety Report 17637858 (Version 1)
Quarter: 2020Q2

REPORT INFORMATION
  Report Type: Spontaneous
  Country: US (occurrence: US)
  Receive Date: 20200406
  Receipt Date: 20200406
  Transmission Date: 20200713
  Serious: No
  Sender: FDA-Public Use
  Company Number: None

PATIENT
  Age: 35 Year
  Sex: Female
  Weight: 101.25 kg

DRUGS (2)
  1. AZELASTINE HYDROCHLORIDE NASAL SPRAY [Suspect]
     Active Substance: AZELASTINE HYDROCHLORIDE
     Indication: MULTIPLE ALLERGIES
     Dosage: ?          QUANTITY:1 SPRAY(S);OTHER ROUTE:NASAL SPRAY?
     Dates: start: 20200403
  2. AZELASTINE HYDROCHLORIDE NASAL SPRAY [Suspect]
     Active Substance: AZELASTINE HYDROCHLORIDE
     Indication: SINUSITIS
     Dosage: ?          QUANTITY:1 SPRAY(S);OTHER ROUTE:NASAL SPRAY?
     Dates: start: 20200403

REACTIONS (1)
  - Dysgeusia [None]

NARRATIVE: CASE EVENT DATE: 20200403
